FAERS Safety Report 6036246-9 (Version None)
Quarter: 2009Q1

REPORT INFORMATION
  Report Type: 
  Country: None (occurrence: None)
  Receive Date: 20090113
  Receipt Date: 20081006
  Transmission Date: 20090719
  Serious: Yes (Death, Congenital Anomaly)
  Sender: FDA-Public Use
  Company Number: PHHY2008FR22075

PATIENT

DRUGS (1)
  1. TASIGNA [Suspect]
     Dosage: 400MG, QD
     Route: 064
     Dates: start: 20080521, end: 20080710

REACTIONS (3)
  - ABORTION INDUCED [None]
  - DRUG EXPOSURE DURING PREGNANCY [None]
  - EXOMPHALOS [None]
